FAERS Safety Report 9689446 (Version 1)
Quarter: 2013Q4

REPORT INFORMATION
  Report Type: Spontaneous
  Country: US (occurrence: US)
  Receive Date: 20131114
  Receipt Date: 20131114
  Transmission Date: 20140711
  Serious: No
  Sender: FDA-Public Use
  Company Number: US-009507513-1311USA005455

PATIENT
  Age: 3 Year
  Sex: Female

DRUGS (2)
  1. SINGULAIR [Suspect]
     Indication: UPPER-AIRWAY COUGH SYNDROME
     Dosage: UNK
     Route: 065
  2. SINGULAIR [Suspect]
     Indication: COUGH
     Dosage: UNK
     Route: 065

REACTIONS (3)
  - Fear [Unknown]
  - Haemorrhage [Unknown]
  - Onychophagia [Unknown]
